FAERS Safety Report 20231109 (Version 1)
Quarter: 2021Q4

REPORT INFORMATION
  Report Type: Spontaneous
  Country: TW (occurrence: TW)
  Receive Date: 20211227
  Receipt Date: 20211227
  Transmission Date: 20220304
  Serious: Yes (Other)
  Sender: FDA-Public Use
  Company Number: TW-PFIZER INC-202101797950

PATIENT
  Sex: Female

DRUGS (1)
  1. LYRICA [Suspect]
     Active Substance: PREGABALIN
     Indication: Fibromyalgia
     Dosage: 2-3 PILLS, QD

REACTIONS (6)
  - Glaucoma [Unknown]
  - Eye haemorrhage [Unknown]
  - Vision blurred [Unknown]
  - Ocular discomfort [Unknown]
  - Pain [Unknown]
  - Insomnia [Unknown]
